FAERS Safety Report 4735649-X (Version None)
Quarter: 2005Q3

REPORT INFORMATION
  Report Type: 
  Country: None (occurrence: None)
  Receive Date: 20050805
  Receipt Date: 20050804
  Transmission Date: 20060218
  Serious: Yes (Death)
  Sender: FDA-Public Use
  Company Number: KR-GLAXOSMITHKLINE-B0389618A

PATIENT
  Age: 81 Year
  Sex: Male

DRUGS (1)
  1. TOPOTECAN [Suspect]
     Indication: SMALL CELL LUNG CANCER RECURRENT
     Dosage: 2.2MGM2 PER DAY
     Route: 042
     Dates: start: 20031107, end: 20031111

REACTIONS (1)
  - DEATH [None]
